FAERS Safety Report 25123929 (Version 1)
Quarter: 2025Q1

REPORT INFORMATION
  Report Type: Spontaneous
  Country: US (occurrence: US)
  Receive Date: 20250326
  Receipt Date: 20250326
  Transmission Date: 20250409
  Serious: No
  Sender: Unknown Manufacturer
  Company Number: US-MELINTA THERAPEUTICS, LLC-US-MLNT-24-00605

PATIENT
  Sex: Male

DRUGS (3)
  1. METOPROLOL SUCCINATE [Suspect]
     Active Substance: METOPROLOL SUCCINATE
     Indication: Product used for unknown indication
     Route: 048
  2. FARXIGA [Suspect]
     Active Substance: DAPAGLIFLOZIN PROPANEDIOL
     Indication: Product used for unknown indication
     Route: 048
  3. ENTRESTO [Suspect]
     Active Substance: SACUBITRIL\VALSARTAN
     Indication: Product used for unknown indication
     Route: 048

REACTIONS (6)
  - Vascular pseudoaneurysm [Unknown]
  - Dizziness postural [Unknown]
  - Blood pressure decreased [Unknown]
  - Feeling abnormal [Unknown]
  - Dizziness [Unknown]
  - Drug ineffective [Unknown]
